FAERS Safety Report 25376655 (Version 1)
Quarter: 2025Q2

REPORT INFORMATION
  Report Type: Report from Study
  Country: US (occurrence: US)
  Receive Date: 20250530
  Receipt Date: 20250530
  Transmission Date: 20250717
  Serious: Yes (Other)
  Sender: ABBVIE
  Company Number: US-ABBVIE-6303636

PATIENT
  Age: 64 Year
  Sex: Female

DRUGS (1)
  1. RINVOQ [Suspect]
     Active Substance: UPADACITINIB
     Indication: Rheumatoid arthritis
     Route: 048
     Dates: start: 20230313

REACTIONS (8)
  - Papule [Unknown]
  - Furuncle [Unknown]
  - Hypoaesthesia [Unknown]
  - Pain [Unknown]
  - Feeling abnormal [Unknown]
  - Hypogeusia [Unknown]
  - Headache [Unknown]
  - Sepsis [Unknown]

NARRATIVE: CASE EVENT DATE: 20250502
